FAERS Safety Report 17503610 (Version 1)
Quarter: 2020Q1

REPORT INFORMATION
  Report Type: Spontaneous
  Country: US (occurrence: US)
  Receive Date: 20200305
  Receipt Date: 20200305
  Transmission Date: 20200409
  Serious: No
  Sender: FDA-Public Use
  Company Number: US-ROCHE-2324570

PATIENT
  Sex: Female

DRUGS (10)
  1. EPIPEN JR [Concomitant]
     Active Substance: EPINEPHRINE
  2. ATENOLOL. [Concomitant]
     Active Substance: ATENOLOL
  3. URSODIOL. [Concomitant]
     Active Substance: URSODIOL
     Route: 065
  4. ATORVASTATIN [Concomitant]
     Active Substance: ATORVASTATIN
     Route: 065
  5. DILT-XR [Concomitant]
     Active Substance: DILTIAZEM
     Route: 065
  6. XOLAIR [Suspect]
     Active Substance: OMALIZUMAB
     Indication: ASTHMA
     Route: 058
  7. LEVOTHYROXINE. [Concomitant]
     Active Substance: LEVOTHYROXINE
     Route: 065
  8. ELIQUIS [Concomitant]
     Active Substance: APIXABAN
  9. MONTELUKAST [Concomitant]
     Active Substance: MONTELUKAST SODIUM
     Route: 065
  10. SYMBICORT [Concomitant]
     Active Substance: BUDESONIDE\FORMOTEROL FUMARATE DIHYDRATE

REACTIONS (1)
  - Nasal pruritus [Not Recovered/Not Resolved]
